FAERS Safety Report 4939861-6 (Version None)
Quarter: 2006Q1

REPORT INFORMATION
  Report Type: 
  Country: None (occurrence: None)
  Receive Date: 20060310
  Receipt Date: 20050113
  Transmission Date: 20060701
  Serious: Yes (Hospitalization, Other)
  Sender: FDA-Public Use
  Company Number: US-MERCK-0501USA01800

PATIENT
  Age: 51 Year
  Sex: Female
  Weight: 66 kg

DRUGS (2)
  1. VIOXX [Suspect]
     Indication: ARTHRALGIA
     Route: 048
     Dates: start: 19990101, end: 20030101
  2. TYLENOL (CAPLET) [Concomitant]
     Route: 065

REACTIONS (25)
  - ANGINA PECTORIS [None]
  - BALANCE DISORDER [None]
  - BASEDOW'S DISEASE [None]
  - BLOOD PRESSURE INCREASED [None]
  - CEREBROVASCULAR ACCIDENT [None]
  - CONSTIPATION [None]
  - DIVERTICULUM [None]
  - DRUG ERUPTION [None]
  - FATIGUE [None]
  - HEADACHE [None]
  - HYPERLIPIDAEMIA [None]
  - HYPERTENSION [None]
  - HYPOKALAEMIA [None]
  - LARYNGITIS [None]
  - MENTAL DISORDER [None]
  - NAIL OPERATION [None]
  - NIGHT SWEATS [None]
  - OBESITY [None]
  - PROTEINURIA [None]
  - RASH [None]
  - RHINITIS ALLERGIC [None]
  - STRESS [None]
  - SUICIDAL IDEATION [None]
  - TENSION HEADACHE [None]
  - TREATMENT NONCOMPLIANCE [None]
